FAERS Safety Report 11180434 (Version 1)
Quarter: 2015Q2

REPORT INFORMATION
  Report Type: Spontaneous
  Country: DE (occurrence: DE)
  Receive Date: 20150611
  Receipt Date: 20150611
  Transmission Date: 20150821
  Serious: Yes (Hospitalization)
  Sender: FDA-Public Use
  Company Number: DE-PFIZER INC-2015190411

PATIENT
  Age: 80 Year
  Sex: Male

DRUGS (12)
  1. OXYCODON [Suspect]
     Active Substance: OXYCODONE
     Dosage: 10 MG, 1X/DAY
  2. TILIDIN [Suspect]
     Active Substance: NALOXONE HYDROCHLORIDE\TILIDINE HYDROCHLORIDE
     Dosage: 40/4, 1 DF, 1X/DAY
  3. VIGANTOLETTEN [Suspect]
     Active Substance: CHOLECALCIFEROL
     Dosage: 1000 IU, 1X/DAY
  4. OPIPRAMOL [Suspect]
     Active Substance: OPIPRAMOL
     Dosage: 50 MG, 1X/DAY
  5. JANUVIA [Suspect]
     Active Substance: SITAGLIPTIN PHOSPHATE
     Dosage: 25 MG, 1X/DAY
  6. FOLSAN [Suspect]
     Active Substance: FOLIC ACID
     Dosage: 1 DF, 1X/DAY
  7. NOVAMIN [Suspect]
     Active Substance: PROCHLORPERAZINE MALEATE
     Dosage: 40 GTT, 1X/DAY
  8. LANTUS [Suspect]
     Active Substance: INSULIN GLARGINE
     Dosage: 20 IU, 1X/DAY
  9. LYRICA [Suspect]
     Active Substance: PREGABALIN
     Dosage: 75 MG, 2X/DAY
  10. TAMSULOSIN HYDROCHLORIDE. [Suspect]
     Active Substance: TAMSULOSIN HYDROCHLORIDE
     Dosage: 0.4 MG, 1X/DAY
  11. ARCOXIA [Suspect]
     Active Substance: ETORICOXIB
     Dosage: 1 DF, 1X/DAY
  12. TOREM [Suspect]
     Active Substance: TORSEMIDE
     Dosage: 10 MG, 1X/DAY

REACTIONS (5)
  - Dizziness [Unknown]
  - Fall [Unknown]
  - Fatigue [Unknown]
  - Laceration [Unknown]
  - Upper limb fracture [Unknown]
